FAERS Safety Report 8332864-3 (Version None)
Quarter: 2012Q1

REPORT INFORMATION
  Report Type: 
  Country: None (occurrence: None)
  Receive Date: 20120327
  Receipt Date: 20110502
  Transmission Date: 20120608
  Serious: Yes (Hospitalization)
  Sender: FDA-Public Use
  Company Number: PHEH2009US15286

PATIENT
  Age: 83 Year
  Sex: Male
  Weight: 67.7 kg

DRUGS (14)
  1. GLUCOPHAGE [Concomitant]
  2. COUMADIN [Concomitant]
  3. ZOLOFT [Concomitant]
  4. LASIX [Concomitant]
  5. VITAMIN (PHYTOMENADIONE) [Concomitant]
  6. CELEBREX (COLECOXIB) [Concomitant]
  7. LIPITOR [Concomitant]
  8. COREG [Concomitant]
  9. MULTIPLE VITAMINS (ASCORBIC ACID, ERGOCALCIFEROL, FOLIC ACID, RETINOL, [Concomitant]
  10. ASCORBIC ACID [Concomitant]
  11. GLEEVEC [Suspect]
     Indication: CHRONIC MYELOID LEUKAEMIA
     Dosage: 2 DF, DAILY, ORAL; 1 DF, BID, ORAL
     Route: 048
     Dates: start: 20110322
  12. GLEEVEC [Suspect]
     Indication: CHRONIC MYELOID LEUKAEMIA
     Dosage: 2 DF, DAILY, ORAL; 1 DF, BID, ORAL
     Route: 048
     Dates: start: 20080822
  13. LANOXIN [Concomitant]
  14. DIOVAN [Concomitant]

REACTIONS (13)
  - VISION BLURRED [None]
  - HAEMATOCRIT DECREASED [None]
  - DEPRESSION [None]
  - ARTHRALGIA [None]
  - DYSPNOEA EXERTIONAL [None]
  - FATIGUE [None]
  - PENILE OEDEMA [None]
  - DRUG INTERACTION [None]
  - SWELLING FACE [None]
  - HAEMOGLOBIN DECREASED [None]
  - ASTHENIA [None]
  - INSOMNIA [None]
  - WHITE BLOOD CELL COUNT DECREASED [None]
